FAERS Safety Report 23978227 (Version 1)
Quarter: 2024Q2

REPORT INFORMATION
  Report Type: Report from Study
  Country: CA (occurrence: CA)
  Receive Date: 20240614
  Receipt Date: 20240614
  Transmission Date: 20240716
  Serious: Yes (Hospitalization)
  Sender: FDA-Public Use
  Company Number: CA-PFIZER INC-202400193167

PATIENT
  Age: 69 Year
  Sex: Male

DRUGS (4)
  1. METHOTREXATE SODIUM [Suspect]
     Active Substance: METHOTREXATE SODIUM
  2. STELARA [Suspect]
     Active Substance: USTEKINUMAB
     Indication: Crohn^s disease
     Route: 040
  3. STELARA [Suspect]
     Active Substance: USTEKINUMAB
     Indication: Crohn^s disease
     Dosage: 520 MG, 1X/DAY
     Route: 058
  4. STELARA [Suspect]
     Active Substance: USTEKINUMAB
     Dosage: 520 MG, WEEKLY
     Route: 058

REACTIONS (5)
  - Abnormal faeces [Unknown]
  - Fatigue [Unknown]
  - Influenza like illness [Unknown]
  - Major depression [Unknown]
  - Off label use [Unknown]
